FAERS Safety Report 6277253-0 (Version None)
Quarter: 2009Q3

REPORT INFORMATION
  Report Type: 
  Country: None (occurrence: None)
  Receive Date: 20090722
  Receipt Date: 20090311
  Transmission Date: 20100115
  Serious: No
  Sender: FDA-Public Use
  Company Number: US-BRISTOL-MYERS SQUIBB COMPANY-14533822

PATIENT
  Age: 74 Year
  Sex: Female
  Weight: 77 kg

DRUGS (4)
  1. COUMADIN [Suspect]
     Indication: ATRIAL FIBRILLATION
     Dosage: DOSE INTERRUPTED AND RESTARTED ON 5MG,AGAIN STOPPED FOR 2DAYS,RESTARTED 4MG/D
     Dates: start: 20081201, end: 20090210
  2. AVALIDE [Suspect]
     Indication: HYPERTENSION
     Dates: start: 20090101
  3. CYTOMEL [Concomitant]
  4. ATENOLOL [Concomitant]

REACTIONS (11)
  - ABDOMINAL PAIN UPPER [None]
  - CHEST DISCOMFORT [None]
  - DIZZINESS [None]
  - DYSPNOEA [None]
  - EYE INFLAMMATION [None]
  - FATIGUE [None]
  - GINGIVAL SWELLING [None]
  - INTERNATIONAL NORMALISED RATIO FLUCTUATION [None]
  - INTERNATIONAL NORMALISED RATIO INCREASED [None]
  - RASH PRURITIC [None]
  - SWOLLEN TONGUE [None]
